FAERS Safety Report 8780272 (Version 1)
Quarter: 2012Q4

REPORT INFORMATION
  Report Type: Spontaneous
  Country: US (occurrence: None)
  Receive Date: 20120829
  Receipt Date: 20120829
  Transmission Date: 20130627
  Serious: Yes (Death)
  Sender: FDA-Public Use
  Company Number: MC201200531

PATIENT
  Sex: Male

DRUGS (1)
  1. CLEVIPREX [Suspect]
     Dosage: titrated up to 50 mg, intravenous
     Route: 042

REACTIONS (2)
  - Incorrect dose administered [None]
  - Drug ineffective [None]
